FAERS Safety Report 13308178 (Version 1)
Quarter: 2017Q1

REPORT INFORMATION
  Report Type: Spontaneous
  Country: US (occurrence: US)
  Receive Date: 20170308
  Receipt Date: 20170308
  Transmission Date: 20170428
  Serious: No
  Sender: FDA-Public Use
  Company Number: US-GLAXOSMITHKLINE-US2017030762

PATIENT
  Age: 74 Year
  Sex: Female

DRUGS (2)
  1. VENTOLIN [Suspect]
     Active Substance: ALBUTEROL SULFATE
     Indication: PRODUCT USED FOR UNKNOWN INDICATION
     Dosage: UNK UNK, U
  2. FLONASE SENSIMIST ALLERGY RELIEF [Suspect]
     Active Substance: FLUTICASONE FUROATE
     Indication: HYPERSENSITIVITY
     Dosage: 2 DF, QD

REACTIONS (5)
  - Chest discomfort [Unknown]
  - Dyspnoea [Recovering/Resolving]
  - Epistaxis [Recovering/Resolving]
  - Productive cough [Recovering/Resolving]
  - Sneezing [Recovering/Resolving]
